FAERS Safety Report 5233459-0 (Version None)
Quarter: 2007Q1

REPORT INFORMATION
  Report Type: 
  Country: None (occurrence: None)
  Receive Date: 20070208
  Receipt Date: 20070202
  Transmission Date: 20070707
  Serious: Yes (Death, Other)
  Sender: FDA-Public Use
  Company Number: US-PURDUE-USA_2007_0026392

PATIENT
  Sex: Male

DRUGS (2)
  1. OXYCODONE HCL [Suspect]
     Indication: DRUG ABUSER
     Dosage: UNK, UNK
     Route: 065
  2. ALCOHOL [Suspect]
     Indication: ALCOHOL USE
     Dosage: UNK, UNK
     Route: 065

REACTIONS (2)
  - GUN SHOT WOUND [None]
  - SUBSTANCE ABUSE [None]
